FAERS Safety Report 14344262 (Version 1)
Quarter: 2018Q1

REPORT INFORMATION
  Report Type: Report from Study
  Country: US (occurrence: US)
  Receive Date: 20180102
  Receipt Date: 20180102
  Transmission Date: 20180509
  Serious: Yes (Other)
  Sender: FDA-Public Use
  Company Number: US-BAUSCH-BL-2017-035471

PATIENT
  Sex: Male

DRUGS (2)
  1. MACUGEN [Suspect]
     Active Substance: PEGAPTANIB SODIUM
     Indication: DIABETIC RETINOPATHY
     Route: 065
  2. MACUGEN [Suspect]
     Active Substance: PEGAPTANIB SODIUM
     Indication: VITREOUS HAEMORRHAGE

REACTIONS (3)
  - Dialysis [Unknown]
  - Off label use [Unknown]
  - Macular degeneration [Unknown]
